FAERS Safety Report 9438883 (Version 16)
Quarter: 2015Q2

REPORT INFORMATION
  Report Type: Report from Study
  Country: CA (occurrence: CA)
  Receive Date: 20130802
  Receipt Date: 20150619
  Transmission Date: 20150821
  Serious: Yes (Hospitalization, Other)
  Sender: FDA-Public Use
  Company Number: CA-ROCHE-1171142

PATIENT
  Age: 68 Year
  Sex: Female
  Weight: 83.9 kg

DRUGS (34)
  1. FOSAVANCE [Concomitant]
     Active Substance: ALENDRONATE SODIUM\CHOLECALCIFEROL
     Indication: OSTEOPOROSIS
     Route: 048
     Dates: start: 20100316
  2. LYRICA [Concomitant]
     Active Substance: PREGABALIN
  3. DOMPERIDONE [Concomitant]
     Active Substance: DOMPERIDONE
  4. ADVAIR DISKUS [Concomitant]
     Active Substance: FLUTICASONE PROPIONATE\SALMETEROL XINAFOATE
     Indication: ASTHMA
     Route: 065
     Dates: start: 20110719
  5. INSULINE [Concomitant]
     Active Substance: INSULIN NOS
     Indication: TYPE 2 DIABETES MELLITUS
     Dosage: 6/12 BREAKFAST/NIGHT
     Route: 058
     Dates: start: 20110916
  6. RITUXAN [Suspect]
     Active Substance: RITUXIMAB
     Dosage: FREQUENCY: DAY 1 AND DAY 15
     Route: 042
     Dates: start: 20131023
  7. METFORMIN [Concomitant]
     Active Substance: METFORMIN HYDROCHLORIDE
     Indication: TYPE 2 DIABETES MELLITUS
     Route: 048
     Dates: start: 20100812
  8. ASPIRIN EC [Concomitant]
     Active Substance: ASPIRIN
  9. ATORVASTATIN [Concomitant]
     Active Substance: ATORVASTATIN
  10. ACETAMINOPHEN. [Concomitant]
     Active Substance: ACETAMINOPHEN
     Indication: PREMEDICATION
     Route: 048
     Dates: start: 20131010
  11. CHLORTHALIDONE. [Concomitant]
     Active Substance: CHLORTHALIDONE
  12. CYANOCOBALAMIN. [Concomitant]
     Active Substance: CYANOCOBALAMIN
  13. SENOKOT [Concomitant]
     Active Substance: SENNOSIDES
  14. SERTRALINE [Concomitant]
     Active Substance: SERTRALINE HYDROCHLORIDE
  15. NOVO-GESIC FORTE [Concomitant]
  16. RABEPRAZOLE [Concomitant]
     Active Substance: RABEPRAZOLE
  17. BUDESONIDE. [Concomitant]
     Active Substance: BUDESONIDE
  18. SPIRIVA [Concomitant]
     Active Substance: TIOTROPIUM BROMIDE MONOHYDRATE
  19. DIPHENHYDRAMINE HCL [Concomitant]
     Active Substance: DIPHENHYDRAMINE HYDROCHLORIDE
     Indication: PREMEDICATION
     Route: 042
     Dates: start: 20121212
  20. METHYLPREDNISOLONE. [Concomitant]
     Active Substance: METHYLPREDNISOLONE
     Indication: PREMEDICATION
     Route: 042
     Dates: start: 20121212, end: 20121227
  21. GLUCAGON. [Concomitant]
     Active Substance: GLUCAGON
  22. OXYCODONE HYDROCHLORIDE AND ACETAMINOPHEN [Concomitant]
     Active Substance: ACETAMINOPHEN\OXYCODONE HYDROCHLORIDE
     Indication: PAIN
     Route: 048
     Dates: start: 20111019
  23. SODIUM CROMOGLYCATE [Concomitant]
     Active Substance: CROMOLYN SODIUM
     Route: 065
  24. METHYLPREDNISOLONE. [Concomitant]
     Active Substance: METHYLPREDNISOLONE
     Route: 042
     Dates: start: 20121227
  25. NOVOLIN 30/70 [Concomitant]
  26. NIFEDIPINE. [Concomitant]
     Active Substance: NIFEDIPINE
  27. FERROUS SULFATE [Concomitant]
     Active Substance: FERROUS SULFATE\FERROUS SULFATE, DRIED
  28. RITUXAN [Suspect]
     Active Substance: RITUXIMAB
     Dosage: MOST RECENT DOSE ON 23/OCT/2013
     Route: 042
     Dates: start: 20130910
  29. COVERSYL [Concomitant]
     Active Substance: PERINDOPRIL
  30. CLONAZEPAM. [Concomitant]
     Active Substance: CLONAZEPAM
  31. RITUXAN [Suspect]
     Active Substance: RITUXIMAB
     Indication: RHEUMATOID ARTHRITIS
     Dosage: MOST RECENT DOSE RECEIVED ON 27/DEC/2012
     Route: 042
     Dates: start: 20121212
  32. SALBUTAMOL [Concomitant]
     Active Substance: ALBUTEROL
  33. DOCUSATE SODIUM. [Concomitant]
     Active Substance: DOCUSATE SODIUM
  34. FUROSEMIDE. [Concomitant]
     Active Substance: FUROSEMIDE

REACTIONS (26)
  - Fall [Unknown]
  - Renal failure [Unknown]
  - Rheumatoid arthritis [Unknown]
  - Infusion related reaction [Unknown]
  - Rib fracture [Not Recovered/Not Resolved]
  - Pneumonia [Recovered/Resolved]
  - Skin cancer [Not Recovered/Not Resolved]
  - Ear neoplasm malignant [Unknown]
  - Full blood count decreased [Unknown]
  - Productive cough [Not Recovered/Not Resolved]
  - Fatigue [Recovering/Resolving]
  - Malaise [Unknown]
  - Urinary tract infection [Not Recovered/Not Resolved]
  - Weight decreased [Unknown]
  - Hypersomnia [Unknown]
  - Ear pain [Recovering/Resolving]
  - Influenza like illness [Recovered/Resolved]
  - Joint swelling [Unknown]
  - Pleurisy [Recovered/Resolved]
  - Pain [Unknown]
  - Hypertension [Recovered/Resolved]
  - Decreased appetite [Recovering/Resolving]
  - Hypotension [Unknown]
  - Dizziness [Unknown]
  - Dehydration [Not Recovered/Not Resolved]
  - Pyrexia [Recovering/Resolving]

NARRATIVE: CASE EVENT DATE: 201307
